FAERS Safety Report 11934893 (Version 1)
Quarter: 2016Q1

REPORT INFORMATION
  Report Type: Spontaneous
  Country: US (occurrence: US)
  Receive Date: 20160121
  Receipt Date: 20160121
  Transmission Date: 20160526
  Serious: Yes (Hospitalization)
  Sender: FDA-Public Use
  Company Number: US-ASTRAZENECA-2016SE06193

PATIENT
  Sex: Female

DRUGS (5)
  1. NEXIUM [Suspect]
     Active Substance: ESOMEPRAZOLE MAGNESIUM
     Route: 048
     Dates: end: 20151217
  2. NEXIUM 24HR [Suspect]
     Active Substance: ESOMEPRAZOLE MAGNESIUM
     Indication: HERNIA
     Dosage: 1 CAPSULE, 2/3 OF THE OTHER CAPSULE, JUST IN THE MORNING
     Route: 048
     Dates: start: 201512
  3. POTASSIUM [Concomitant]
     Active Substance: POTASSIUM
     Indication: ELECTROLYTE SUBSTITUTION THERAPY
     Dates: start: 2012
  4. NEXIUM [Suspect]
     Active Substance: ESOMEPRAZOLE MAGNESIUM
     Route: 048
     Dates: start: 201512
  5. ENZYMES NOS [Concomitant]
     Dosage: UNK

REACTIONS (10)
  - Ear discomfort [Unknown]
  - Drug withdrawal syndrome [Unknown]
  - Hypophagia [Unknown]
  - Drug ineffective for unapproved indication [Unknown]
  - Mineral deficiency [Unknown]
  - Polyuria [Unknown]
  - Dizziness [Unknown]
  - Nausea [Recovering/Resolving]
  - Product use issue [Unknown]
  - Intentional product misuse [Unknown]

NARRATIVE: CASE EVENT DATE: 2012
